FAERS Safety Report 4537950-1 (Version None)
Quarter: 2004Q4

REPORT INFORMATION
  Report Type: 
  Country: None (occurrence: None)
  Receive Date: 20041224
  Receipt Date: 20041221
  Transmission Date: 20050328
  Serious: Yes (Death, Other)
  Sender: FDA-Public Use
  Company Number: PHEH2004US13578

PATIENT
  Sex: Female

DRUGS (5)
  1. DEXAMETHASONE [Suspect]
     Dosage: 10MG EVERY WEEK
     Dates: start: 20021201, end: 20030701
  2. DOXIL [Suspect]
     Dosage: 10MG/M2 WEEKLY
     Dates: start: 20030101, end: 20030701
  3. TAXOL [Concomitant]
  4. AREDIA [Suspect]
     Indication: BREAST CANCER
     Dosage: 90MG EVERY 4 WEEKS
     Route: 042
     Dates: start: 19960901, end: 20021101
  5. ZOMETA [Suspect]
     Indication: BREAST CANCER
     Dosage: 4MG EVERY 4 WEEKS
     Route: 042
     Dates: start: 20021201, end: 20030701

REACTIONS (2)
  - DEATH [None]
  - OSTEONECROSIS [None]
